FAERS Safety Report 12699641 (Version 1)
Quarter: 2016Q3

REPORT INFORMATION
  Report Type: Spontaneous
  Country: NO (occurrence: NO)
  Receive Date: 20160830
  Receipt Date: 20160830
  Transmission Date: 20161109
  Serious: Yes (Death)
  Sender: FDA-Public Use
  Company Number: NO-TEVA-686748ACC

PATIENT
  Sex: Female

DRUGS (16)
  1. BURINEX [Concomitant]
     Active Substance: BUMETANIDE
     Dosage: 1 MILLIGRAM DAILY;
     Route: 048
  2. SOBRIL [Concomitant]
     Active Substance: OXAZEPAM
     Dosage: 20 MILLIGRAM DAILY;
     Route: 048
  3. ORFIRIL [Concomitant]
     Active Substance: VALPROIC ACID
     Dosage: 750 MG IN THE MORNING, 900 MG IN THE AFTERNOON.
     Route: 048
  4. IBUX [Concomitant]
     Active Substance: IBUPROFEN
     Dosage: 1 TABLET TWICE DAILY AS NEEDED
     Route: 048
  5. ZOPICLONE [Concomitant]
     Active Substance: ZOPICLONE
     Route: 048
  6. LETROZOLE. [Concomitant]
     Active Substance: LETROZOLE
     Dosage: 2.5 MILLIGRAM DAILY;
     Route: 048
  7. OLANZAPINE. [Suspect]
     Active Substance: OLANZAPINE
     Indication: BIPOLAR DISORDER
     Dosage: 20 MILLIGRAM DAILY;
     Route: 048
  8. CENTYL MITE MED KALIUMKLORID [Concomitant]
     Dosage: 1 DOSAGE FORMS DAILY; BENDROFLUMETHIAZIDE : POTASSIUM CHLORIDE-2.5 MG/573 MG
  9. FERROMAX [Concomitant]
     Dosage: 65 MILLIGRAM DAILY;
     Route: 048
  10. KALEORID [Concomitant]
     Active Substance: POTASSIUM CHLORIDE
     Route: 048
  11. VALLERGAN [Concomitant]
     Active Substance: TRIMEPRAZINE
     Dosage: 40 MILLIGRAM DAILY;
     Route: 048
  12. DUPHALAC [Concomitant]
     Active Substance: LACTULOSE
     Dosage: 60 MILLIGRAM DAILY;
     Route: 048
  13. LEVAXIN [Concomitant]
     Active Substance: LEVOTHYROXINE SODIUM
     Dosage: 50 MICROGRAM DAILY;
     Route: 048
  14. PARALGIN FORTE [Concomitant]
     Active Substance: ACETAMINOPHEN\CODEINE PHOSPHATE
     Dosage: UP TO 3 TABLETS AS NEEDED
     Route: 048
  15. AKINETON [Concomitant]
     Active Substance: BIPERIDEN HYDROCHLORIDE
     Dosage: 4 MILLIGRAM DAILY;
     Route: 048
  16. PANODIL [Concomitant]
     Active Substance: ACETAMINOPHEN
     Dosage: 3000 MILLIGRAM DAILY;
     Route: 048

REACTIONS (1)
  - Toxicity to various agents [Fatal]
